FAERS Safety Report 9420046 (Version 1)
Quarter: 2013Q3

REPORT INFORMATION
  Report Type: Spontaneous
  Country: NL (occurrence: NL)
  Receive Date: 20130725
  Receipt Date: 20130725
  Transmission Date: 20140515
  Serious: Yes (Disabling, Other)
  Sender: FDA-Public Use
  Company Number: NL-ACTAVIS-2013-11382

PATIENT
  Age: 80 Year
  Sex: Male

DRUGS (4)
  1. SIMVASTATIN (UNKNOWN) [Suspect]
     Indication: PRODUCT USED FOR UNKNOWN INDICATION
     Dosage: UNK
     Route: 065
  2. HYDROCHLOROTHIAZIDE (UNKNOWN) [Suspect]
     Dosage: UNK
     Route: 065
  3. ENALAPRIL MALEATE (UNKNOWN) [Suspect]
     Indication: HYPERTENSION
     Dosage: 10 MG, BID
     Route: 065
  4. ACETYLSALICYLIC ACID [Concomitant]
     Indication: PRODUCT USED FOR UNKNOWN INDICATION
     Dosage: 80 MG, Q24H
     Route: 065

REACTIONS (4)
  - Orthostatic hypotension [Recovering/Resolving]
  - Fall [Recovered/Resolved]
  - Pruritus generalised [Recovered/Resolved]
  - Rash maculo-papular [Recovered/Resolved]
